FAERS Safety Report 11322930 (Version 3)
Quarter: 2016Q4

REPORT INFORMATION
  Report Type: Spontaneous
  Country: JP (occurrence: JP)
  Receive Date: 20150730
  Receipt Date: 20161031
  Transmission Date: 20170206
  Serious: Yes (Other)
  Sender: FDA-Public Use
  Company Number: JP-AMGEN-JPNSP2015076509

PATIENT
  Age: 81 Year
  Sex: Male

DRUGS (11)
  1. ZOLADEX LA [Concomitant]
     Active Substance: GOSERELIN ACETATE
     Indication: PROSTATE CANCER
     Dosage: 10.8 MG, QD
     Route: 058
     Dates: start: 20120619
  2. CINAL [Concomitant]
     Active Substance: ASCORBIC ACID\CALCIUM PANTOTHENATE
     Indication: APLASTIC ANAEMIA
     Dosage: 1 DF, QD
     Route: 048
  3. MICARDIS [Concomitant]
     Active Substance: TELMISARTAN
     Indication: HYPERTENSION
     Dosage: 20 MG, QD
     Route: 048
  4. KEISHIBUKURYOGAN [Concomitant]
     Active Substance: HERBALS
     Indication: MENOPAUSAL SYMPTOMS
     Dosage: 2.5 G, TID
     Route: 048
     Dates: start: 20130305
  5. FERRUM [Concomitant]
     Active Substance: FERROUS FUMARATE
     Indication: APLASTIC ANAEMIA
     Dosage: 100 MG, QD
     Route: 048
  6. DENOTAS [Concomitant]
     Active Substance: CALCIUM CARBONATE\CHOLECALCIFEROL\MAGNESIUM CARBONATE
     Indication: HYPOCALCAEMIA
     Dosage: 2 DF, QD
     Route: 048
     Dates: start: 20130625, end: 20150721
  7. LANSOPRAZOLE. [Concomitant]
     Active Substance: LANSOPRAZOLE
     Indication: GASTROOESOPHAGEAL REFLUX DISEASE
     Dosage: 15 MG, QD
     Route: 048
  8. AMLODIPINE [Concomitant]
     Active Substance: AMLODIPINE BESYLATE
     Indication: HYPERTENSION
     Dosage: 2.5 MG, QD
     Route: 048
  9. CASODEX [Concomitant]
     Active Substance: BICALUTAMIDE
     Indication: PROSTATE CANCER
     Dosage: 80 MG, QD
     Route: 048
     Dates: start: 20120522
  10. LOXOPROFEN [Concomitant]
     Active Substance: LOXOPROFEN
     Indication: SUBDURAL HYGROMA
     Dosage: 60 MG, TID
     Route: 048
  11. RANMARK [Suspect]
     Active Substance: DENOSUMAB
     Indication: METASTASES TO BONE
     Dosage: 120 MG, Q4WK
     Route: 030
     Dates: start: 20120619, end: 20150526

REACTIONS (1)
  - Osteonecrosis of jaw [Not Recovered/Not Resolved]

NARRATIVE: CASE EVENT DATE: 20150619
